FAERS Safety Report 5192351-0 (Version None)
Quarter: 2006Q4

REPORT INFORMATION
  Report Type: 
  Country: None (occurrence: None)
  Receive Date: 20061227
  Receipt Date: 20061221
  Transmission Date: 20070319
  Serious: Yes (Death)
  Sender: FDA-Public Use
  Company Number: US-BRISTOL-MYERS SQUIBB COMPANY-13620117

PATIENT
  Age: 61 Year
  Sex: Female

DRUGS (1)
  1. MEGACE [Suspect]
     Indication: OVARIAN CANCER

REACTIONS (1)
  - DEATH [None]
